FAERS Safety Report 6474094-6 (Version None)
Quarter: 2009Q4

REPORT INFORMATION
  Report Type: 
  Country: None (occurrence: None)
  Receive Date: 20091123
  Receipt Date: 20090903
  Transmission Date: 20100525
  Serious: No
  Sender: FDA-Public Use
  Company Number: 8051526

PATIENT
  Sex: Female

DRUGS (2)
  1. CIMZIA [Suspect]
     Dosage: 400 MG SC
     Route: 058
     Dates: start: 20090210
  2. PHENERGAN HCL [Concomitant]

REACTIONS (3)
  - DISCOMFORT [None]
  - GASTROINTESTINAL INFLAMMATION [None]
  - WHITE BLOOD CELL COUNT INCREASED [None]
